FAERS Safety Report 10779788 (Version 1)
Quarter: 2015Q1

REPORT INFORMATION
  Report Type: Spontaneous
  Country: CN (occurrence: None)
  Receive Date: 20150206
  Receipt Date: 20150206
  Transmission Date: 20150721
  Serious: Yes (Other)
  Sender: FDA-Public Use
  Company Number: 2015JUB00030

PATIENT
  Age: 47 Year
  Sex: Male

DRUGS (6)
  1. DOXORUBICIN (DOXORUBICIN) INJECTION [Suspect]
     Active Substance: DOXORUBICIN
     Indication: DIFFUSE LARGE B-CELL LYMPHOMA
     Dosage: 50 MG/M2, 1X/DAY; 4 CYCLES, INTRAVNEOUS??
     Route: 042
  2. LAMIVUDINE (LAMIVUDINE) [Concomitant]
     Active Substance: LAMIVUDINE
  3. CYCLOPHOSPHAMIDE (CYCLOPHOSPHAMIDE) INJECTION [Suspect]
     Active Substance: CYCLOPHOSPHAMIDE
     Indication: DIFFUSE LARGE B-CELL LYMPHOMA
     Dosage: 750 MG/M2, 1X/DAY; 4 CYCLES, INTRAVNEOUS? ?
     Route: 042
  4. RITUXIMAB (RITUXIMAB) INJECTION [Suspect]
     Active Substance: RITUXIMAB
     Indication: DIFFUSE LARGE B-CELL LYMPHOMA
     Dosage: 375 MG/M2, 1X/DAY; 4 CYCLES, INTRAVENOUS? ??
     Route: 042
  5. VINCRISTINE (VINCRISTINE) INJECTION [Suspect]
     Active Substance: VINCRISTINE
     Indication: DIFFUSE LARGE B-CELL LYMPHOMA
     Dosage: 1.4 MG/M2, 1X/DAY, 4 CYCLES, INTRAVENOUS???
     Route: 042
  6. PREDNISONE. [Suspect]
     Active Substance: PREDNISONE
     Indication: DIFFUSE LARGE B-CELL LYMPHOMA
     Dosage: 60 MG/M2, 1X/DAY, 5 DAYS/CYCLE, 4 CYCLES, INTRAVENOUS ???
     Route: 042

REACTIONS (2)
  - Hepatitis B [None]
  - Hepatic cirrhosis [None]
